FAERS Safety Report 4317246-3 (Version None)
Quarter: 2004Q1

REPORT INFORMATION
  Report Type: 
  Country: None (occurrence: None)
  Receive Date: 20040312
  Receipt Date: 20040227
  Transmission Date: 20041129
  Serious: Yes (Other)
  Sender: FDA-Public Use
  Company Number: 2004009553

PATIENT
  Age: 17 Year
  Sex: Female

DRUGS (3)
  1. ZITHROMAX [Suspect]
     Indication: ILL-DEFINED DISORDER
     Dosage: ORAL
     Route: 048
     Dates: start: 20040204, end: 20040206
  2. PL GRAN. (CAFFEINE, SALICYLAMIDE, PARACETAMOL, PROMETHAZINE METHYLENE [Concomitant]
  3. DEQUALINIUM CHLORIDE (DEQUALINIUM CHLORIDE) [Concomitant]

REACTIONS (4)
  - CONVULSION [None]
  - EPILEPSY [None]
  - OEDEMA MOUTH [None]
  - SYNCOPE [None]
